FAERS Safety Report 5485833-5 (Version None)
Quarter: 2007Q4

REPORT INFORMATION
  Report Type: 
  Country: None (occurrence: None)
  Receive Date: 20071015
  Receipt Date: 20071001
  Transmission Date: 20080405
  Serious: Yes (Other)
  Sender: FDA-Public Use
  Company Number: US-ELI_LILLY_AND_COMPANY-US_0412108820

PATIENT
  Sex: Female
  Weight: 66.364 kg

DRUGS (2)
  1. STRATTERA [Suspect]
     Dosage: 40 MG, DAILY (1/D)
     Dates: start: 20040317, end: 20040605
  2. WELLBUTRIN [Concomitant]
     Dosage: 300 MG, DAILY (1/D)
     Dates: end: 20040510

REACTIONS (6)
  - AUTOIMMUNE HEPATITIS [None]
  - HEPATITIS CHOLESTATIC [None]
  - HEPATITIS VIRAL [None]
  - JAUNDICE [None]
  - LIVER DISORDER [None]
  - NAUSEA [None]
